FAERS Safety Report 7765724-7 (Version None)
Quarter: 2011Q3

REPORT INFORMATION
  Report Type: 
  Country: None (occurrence: None)
  Receive Date: 20110921
  Receipt Date: 20110914
  Transmission Date: 20111222
  Serious: Yes (Other)
  Sender: FDA-Public Use
  Company Number: PHHY2011BR81820

PATIENT
  Sex: Female

DRUGS (4)
  1. RANITIDINE [Concomitant]
     Dosage: 150 MG, UNK
  2. EXFORGE [Concomitant]
     Dosage: UNK
  3. AMARYL [Concomitant]
     Dosage: UNK
  4. AMLODIPINE BESYLATE [Suspect]
     Dosage: 5 MG, UNK
     Route: 048

REACTIONS (2)
  - THROMBOSIS [None]
  - OEDEMA PERIPHERAL [None]
